FAERS Safety Report 6196580-9 (Version None)
Quarter: 2009Q2

REPORT INFORMATION
  Report Type: 
  Country: None (occurrence: None)
  Receive Date: 20090520
  Receipt Date: 20090513
  Transmission Date: 20091009
  Serious: Yes (Other)
  Sender: FDA-Public Use
  Company Number: B0574924A

PATIENT
  Sex: Female
  Weight: 77 kg

DRUGS (5)
  1. ALLI [Suspect]
     Dosage: 1CAP PER DAY
     Route: 065
     Dates: start: 20090507, end: 20090510
  2. DICETEL [Concomitant]
     Indication: GASTROINTESTINAL DISORDER
     Dosage: 2TAB PER DAY
     Route: 065
     Dates: start: 20080501
  3. DEROXAT [Concomitant]
     Indication: DRUG USE FOR UNKNOWN INDICATION
     Route: 065
     Dates: start: 20080501
  4. SERESTA [Concomitant]
     Indication: INSOMNIA
     Dosage: 1TAB PER DAY
     Route: 065
     Dates: start: 20070501
  5. XENICAL [Concomitant]
     Route: 065

REACTIONS (3)
  - HYPERSENSITIVITY [None]
  - OEDEMA PERIPHERAL [None]
  - PRURITUS [None]
